FAERS Safety Report 19635897 (Version 1)
Quarter: 2021Q3

REPORT INFORMATION
  Report Type: Spontaneous
  Country: US (occurrence: US)
  Receive Date: 20210730
  Receipt Date: 20210730
  Transmission Date: 20211014
  Serious: No
  Sender: FDA-Public Use
  Company Number: None

PATIENT
  Age: 67 Year
  Sex: Female
  Weight: 79.65 kg

DRUGS (16)
  1. IBUPROFEN 200MG [Concomitant]
     Active Substance: IBUPROFEN
  2. FASLODEX [Concomitant]
     Active Substance: FULVESTRANT
  3. CAPECITABINE. [Suspect]
     Active Substance: CAPECITABINE
     Indication: BREAST CANCER
     Dosage: ?          OTHER FREQUENCY:BID X 14/21 DAYS;?
     Route: 048
     Dates: start: 20210127, end: 20210730
  4. AMLODIPINE [Concomitant]
     Active Substance: AMLODIPINE BESYLATE
  5. IRBESARTAN 75MG [Concomitant]
  6. GABAPENTIN 100MG [Concomitant]
     Active Substance: GABAPENTIN
  7. ZOMETA 4MG/5ML [Concomitant]
  8. FLONASE ALLERGY 50MCG/ACT [Concomitant]
  9. NORVASC [Concomitant]
     Active Substance: AMLODIPINE BESYLATE
  10. LEVOTHYROXINE 88MCG [Concomitant]
     Active Substance: LEVOTHYROXINE
  11. ALLEGRA ALLERGY 60MG [Concomitant]
  12. VITAMIN D 2000IU [Concomitant]
  13. ELIQUIS [Concomitant]
     Active Substance: APIXABAN
  14. CAPECITABINE. [Suspect]
     Active Substance: CAPECITABINE
     Indication: BREAST CANCER
     Dosage: ?          OTHER FREQUENCY:BID X 14/21 DAYS;?
     Route: 048
     Dates: start: 20210109, end: 20210730
  15. ARIMIDEX 1MG [Concomitant]
  16. TRAMADOL 50MG [Concomitant]
     Active Substance: TRAMADOL

REACTIONS (1)
  - Disease progression [None]

NARRATIVE: CASE EVENT DATE: 20210730
